FAERS Safety Report 15362373 (Version 1)
Quarter: 2018Q3

REPORT INFORMATION
  Report Type: Spontaneous
  Country: US (occurrence: US)
  Receive Date: 20180831
  Receipt Date: 20180831
  Transmission Date: 20181010
  Serious: Yes (Disabling, Other)
  Sender: FDA-Public Use
  Company Number: None

PATIENT
  Age: 61 Year
  Sex: Female
  Weight: 117.93 kg

DRUGS (1)
  1. VALSARTAN?HCTZ 320?25 MG TAB [Suspect]
     Active Substance: HYDROCHLOROTHIAZIDE\VALSARTAN
     Indication: HYPERTENSION
     Dosage: 320 MG VALSARTAN 25 MG  HCTZ
     Route: 048
     Dates: start: 20140305, end: 20180705

REACTIONS (4)
  - Blood glucose increased [None]
  - Visual impairment [None]
  - Tooth disorder [None]
  - Hypertension [None]

NARRATIVE: CASE EVENT DATE: 20140305
